FAERS Safety Report 11377659 (Version 2)
Quarter: 2015Q3

REPORT INFORMATION
  Report Type: Spontaneous
  Country: US (occurrence: US)
  Receive Date: 20150811
  Receipt Date: 20150903
  Transmission Date: 20151125
  Serious: No
  Sender: FDA-Public Use
  Company Number: US-ELI_LILLY_AND_COMPANY-US200904006642

PATIENT
  Age: 16 Year
  Sex: Male
  Weight: 94.33 kg

DRUGS (2)
  1. HUMALOG [Suspect]
     Active Substance: INSULIN LISPRO
  2. HUMULIN 70/30 [Suspect]
     Active Substance: INSULIN HUMAN

REACTIONS (2)
  - Drug dispensing error [Unknown]
  - Drug dispensing error [Unknown]

NARRATIVE: CASE EVENT DATE: 200903
